FAERS Safety Report 11531772 (Version 2)
Quarter: 2015Q3

REPORT INFORMATION
  Report Type: Spontaneous
  Country: US (occurrence: US)
  Receive Date: 20150921
  Receipt Date: 20150929
  Transmission Date: 20151125
  Serious: Yes (Other)
  Sender: FDA-Public Use
  Company Number: CHPA2015US010976

PATIENT

DRUGS (1)
  1. KERI LOTION [Suspect]
     Active Substance: LANOLIN\MINERAL OIL
     Indication: PRODUCT USED FOR UNKNOWN INDICATION
     Dosage: UNK
     Route: 065

REACTIONS (1)
  - Drug dependence [Unknown]
